FAERS Safety Report 19884843 (Version 1)
Quarter: 2021Q3

REPORT INFORMATION
  Report Type: Spontaneous
  Country: US (occurrence: US)
  Receive Date: 20210927
  Receipt Date: 20210927
  Transmission Date: 20211014
  Serious: Yes (Hospitalization)
  Sender: FDA-Public Use
  Company Number: None

PATIENT
  Age: 30 Year
  Sex: Female
  Weight: 54.9 kg

DRUGS (10)
  1. REMICADE [Suspect]
     Active Substance: INFLIXIMAB
  2. ONDANSETRON 4 MG [Concomitant]
     Active Substance: ONDANSETRON
  3. IMURAN [Suspect]
     Active Substance: AZATHIOPRINE
  4. IMURAN [Concomitant]
     Active Substance: AZATHIOPRINE
  5. ACETAMINOPHEN 325 MG [Concomitant]
     Active Substance: ACETAMINOPHEN
  6. ESCITALOPRAM OXALATE 5 MG/5 ML [Concomitant]
  7. TRAZODONE [Concomitant]
     Active Substance: TRAZODONE HYDROCHLORIDE
  8. REMICADE 10MG/KG Q 6 WEEKS (LAST DOSE 18DEC2019; SUBSEQUENTLY DISCONTI [Concomitant]
  9. OMEPRAZOLE 20 MG [Concomitant]
     Active Substance: OMEPRAZOLE
  10. PROAIR HFA 90 MCG/ACTUATION [Concomitant]

REACTIONS (4)
  - Constipation [None]
  - Colitis [None]
  - Abdominal pain [None]
  - Colitis ulcerative [None]

NARRATIVE: CASE EVENT DATE: 20191219
